FAERS Safety Report 7881155 (Version 2)
Quarter: 2012Q4

REPORT INFORMATION
  Report Type: 
  Country: IN (occurrence: IN)
  Receive Date: 20110401
  Receipt Date: 20120926
  Transmission Date: 20130627
  Serious: Yes (Death)
  Sender: FDA-Public Use
  Company Number: PHHY2011IN25082

PATIENT
  Age: 51 Year
  Sex: Male

DRUGS (3)
  1. GLIVEC [Suspect]
     Indication: CHRONIC MYELOID LEUKAEMIA
     Dates: start: 20100818
  2. GLIVEC [Suspect]
     Dosage: 600 mg,
  3. GLIVEC [Suspect]
     Dosage: 400 mg, UNK

REACTIONS (1)
  - Death [Fatal]
